FAERS Safety Report 6049742-5 (Version None)
Quarter: 2009Q1

REPORT INFORMATION
  Report Type: 
  Country: None (occurrence: None)
  Receive Date: 20090121
  Receipt Date: 20080410
  Transmission Date: 20090719
  Serious: Yes (Other)
  Sender: FDA-Public Use
  Company Number: HQWYE699511OCT04

PATIENT
  Age: 72 Year
  Sex: Female

DRUGS (5)
  1. PREMPRO [Suspect]
     Indication: MENOPAUSE
     Dosage: UNSPECIFIED, ORAL
     Route: 048
     Dates: start: 19700101, end: 20000101
  2. CYCRIN [Suspect]
     Indication: MENOPAUSAL SYMPTOMS
  3. ESTRACE [Suspect]
  4. PREMARIN [Suspect]
     Indication: MENOPAUSAL SYMPTOMS
     Dates: start: 19700101, end: 20000101
  5. PROVERA [Suspect]
     Indication: MENOPAUSAL SYMPTOMS
     Dosage: UNSPECIFIED, ORAL
     Route: 048
     Dates: start: 19700101, end: 20000101

REACTIONS (1)
  - BREAST CANCER [None]
